FAERS Safety Report 9126028 (Version 1)
Quarter: 2013Q1

REPORT INFORMATION
  Report Type: Spontaneous
  Country: US (occurrence: US)
  Receive Date: 20130117
  Receipt Date: 20130117
  Transmission Date: 20140127
  Serious: No
  Sender: FDA-Public Use
  Company Number: US-B.I. PHARMACEUTICALS,INC./RIDGEFIELD-2013-BI-00235PF

PATIENT
  Sex: Female
  Weight: 66.22 kg

DRUGS (8)
  1. SPIRIVA [Suspect]
  2. LYRICA [Suspect]
     Indication: NERVE INJURY
     Dosage: 100 MG
     Dates: start: 20121211
  3. SYMBICORT [Concomitant]
  4. ALBUTEROL INHALER [Concomitant]
  5. ALBUTEROL NEBULIZER [Concomitant]
  6. METOPROLOL [Concomitant]
     Indication: CARDIAC DISORDER
  7. ASPIRIN [Concomitant]
     Indication: CARDIAC DISORDER
     Dosage: 25 MG
  8. FAMOTIDINE [Concomitant]
     Indication: GASTROOESOPHAGEAL REFLUX DISEASE

REACTIONS (3)
  - Vision blurred [Recovered/Resolved]
  - Dizziness [Recovered/Resolved]
  - Hypersomnia [Recovered/Resolved]
